FAERS Safety Report 9112785 (Version 1)
Quarter: 2013Q1

REPORT INFORMATION
  Report Type: Report from Study
  Country: US (occurrence: US)
  Receive Date: 20130211
  Receipt Date: 20130211
  Transmission Date: 20140127
  Serious: Yes (Death, Hospitalization)
  Sender: FDA-Public Use
  Company Number: US-ROCHE-1158895

PATIENT
  Sex: Female

DRUGS (1)
  1. CELLCEPT [Suspect]
     Indication: PRODUCT USED FOR UNKNOWN INDICATION
     Dosage: DOSE: 2 TABLETS
     Route: 048

REACTIONS (3)
  - Death [Fatal]
  - Full blood count decreased [Unknown]
  - Dyspnoea [Unknown]
